FAERS Safety Report 9891588 (Version 2)
Quarter: 2014Q1

REPORT INFORMATION
  Report Type: Report from Study
  Country: DE (occurrence: DE)
  Receive Date: 20140212
  Receipt Date: 20140221
  Transmission Date: 20141002
  Serious: Yes (Hospitalization)
  Sender: FDA-Public Use
  Company Number: DE-ROCHE-1345544

PATIENT
  Age: 54 Year
  Sex: Female
  Weight: 92 kg

DRUGS (5)
  1. TRASTUZUMAB EMTANSINE [Suspect]
     Indication: BREAST CANCER METASTATIC
     Dosage: MOST RECENT DOSE PRIOR TO AE ONSET: 09/JAN/2014?THERAPY PERMANENTLY DISCONTINUED
     Route: 042
     Dates: start: 20130402, end: 20140127
  2. DEXAMETHASONE [Concomitant]
     Route: 065
     Dates: start: 20130404
  3. MST (GERMANY) [Concomitant]
     Route: 065
     Dates: start: 20130826
  4. ONDANSETRON [Concomitant]
     Route: 065
     Dates: start: 20130404
  5. ZOMETA [Concomitant]
     Route: 065
     Dates: start: 20120804

REACTIONS (1)
  - Interstitial lung disease [Not Recovered/Not Resolved]
